FAERS Safety Report 8625974-4 (Version None)
Quarter: 2012Q3

REPORT INFORMATION
  Report Type: 
  Country: None (occurrence: None)
  Receive Date: 20120827
  Receipt Date: 20120725
  Transmission Date: 20120928
  Serious: Yes (Other)
  Sender: FDA-Public Use
  Company Number: CA-ROCHE-GNE305461

PATIENT
  Sex: Female

DRUGS (7)
  1. XOLAIR [Suspect]
     Indication: ASTHMA
     Route: 058
     Dates: start: 20050722
  2. FLUTICASONE PROPIONATE [Concomitant]
  3. XOLAIR [Suspect]
     Route: 058
     Dates: start: 20110406
  4. XOLAIR [Suspect]
     Route: 058
     Dates: start: 20060118
  5. METFORMIN HCL [Concomitant]
  6. FLOVENT [Concomitant]
  7. VENTOLIN [Concomitant]

REACTIONS (16)
  - UNDERDOSE [None]
  - EYE PRURITUS [None]
  - WEIGHT INCREASED [None]
  - ASTHMA [None]
  - DIABETES MELLITUS [None]
  - CHEST DISCOMFORT [None]
  - SEASONAL ALLERGY [None]
  - FATIGUE [None]
  - FEELING ABNORMAL [None]
  - ECZEMA [None]
  - WEIGHT DECREASED [None]
  - LOWER RESPIRATORY TRACT INFECTION [None]
  - COUGH [None]
  - CHEST PAIN [None]
  - FURUNCLE [None]
  - DECREASED APPETITE [None]
